FAERS Safety Report 4289806-X (Version None)
Quarter: 2004Q1

REPORT INFORMATION
  Report Type: 
  Country: None (occurrence: None)
  Receive Date: 20040210
  Receipt Date: 20040203
  Transmission Date: 20041129
  Serious: Yes (Hospitalization)
  Sender: FDA-Public Use
  Company Number: FR-GLAXOSMITHKLINE-B0322020A

PATIENT
  Age: 84 Year
  Sex: Female

DRUGS (5)
  1. AUGMENTIN '125' [Suspect]
     Dosage: 3G PER DAY
     Route: 048
     Dates: start: 20031228, end: 20040104
  2. ROCEPHIN [Suspect]
     Dosage: 1G TWICE PER DAY
     Route: 042
     Dates: start: 20040101, end: 20040101
  3. LASILIX [Concomitant]
     Route: 048
  4. COVERSYL [Concomitant]
     Route: 048
  5. FLAGYL [Concomitant]
     Dosage: 1.5G PER DAY
     Route: 048
     Dates: start: 20040102, end: 20040112

REACTIONS (3)
  - DERMATITIS BULLOUS [None]
  - PRURITUS [None]
  - SKIN DISORDER [None]
